FAERS Safety Report 8957533 (Version 1)
Quarter: 2012Q4

REPORT INFORMATION
  Report Type: Report from Study
  Country: US (occurrence: US)
  Receive Date: 20121211
  Receipt Date: 20121211
  Transmission Date: 20130627
  Serious: Yes (Death, Hospitalization)
  Sender: FDA-Public Use
  Company Number: US-CELGENEUS-163-21880-12110376

PATIENT
  Age: 81 Year
  Sex: Male
  Weight: 74 kg

DRUGS (5)
  1. REVLIMID [Suspect]
     Indication: MYELOMA
     Dosage: 10 Milligram
     Route: 048
     Dates: start: 20100125
  2. REVLIMID [Suspect]
     Dosage: 7.5 Milligram
     Route: 048
     Dates: start: 20120927, end: 20121025
  3. MELPHALAN [Suspect]
     Indication: MYELOMA
     Dosage: 5 milligram/sq. meter
     Route: 048
     Dates: start: 20100125, end: 20110123
  4. PREDNISONE [Suspect]
     Indication: MYELOMA
     Dosage: 100 Milligram
     Route: 048
     Dates: start: 20100125, end: 20110123
  5. ASPIRIN [Concomitant]
     Indication: DRUG USE FOR UNKNOWN INDICATION
     Dosage: 325 Milligram
     Route: 048
     Dates: start: 20100125

REACTIONS (7)
  - Abdominal infection [Fatal]
  - Confusional state [Unknown]
  - Cerebrovascular accident [Unknown]
  - Decreased appetite [Unknown]
  - Fatigue [Unknown]
  - Muscular weakness [Unknown]
  - Pain in extremity [Unknown]
